FAERS Safety Report 9837982 (Version 1)
Quarter: 2013Q4

REPORT INFORMATION
  Report Type: Spontaneous
  Country: US (occurrence: None)
  Receive Date: 20131205
  Receipt Date: 20131205
  Transmission Date: 20140711
  Serious: No
  Sender: FDA-Public Use
  Company Number: 163-POMAL-13106088

PATIENT
  Age: 71 Year
  Sex: Female

DRUGS (7)
  1. POMALYST [Suspect]
     Indication: PLASMA CELL MYELOMA
     Dosage: 2MG, 14 IN 14 D, PO
     Route: 048
     Dates: start: 20131011
  2. CITALOPRAM HYDROBROMIDE (CITALOPRAM HYDROBROMIDE) [Concomitant]
  3. DEXAMETHASONE (DEXAMETHASONE) [Concomitant]
  4. FLUCONAZOLE (FLUCONAZOLE) [Concomitant]
  5. PRILOSEC (OMEPRAZOLE) [Concomitant]
  6. ONDANSETRON HCL (ONDANSETRON HYDROCHLORIDE) [Concomitant]
  7. XIBROM (BROMFENAC SODIUM) [Concomitant]

REACTIONS (2)
  - Alopecia [None]
  - Fatigue [None]
